FAERS Safety Report 10283460 (Version 2)
Quarter: 2014Q3

REPORT INFORMATION
  Report Type: Report from Study
  Country: CN (occurrence: CN)
  Receive Date: 20140708
  Receipt Date: 20140708
  Transmission Date: 20150326
  Serious: Yes (Hospitalization)
  Sender: FDA-Public Use
  Company Number: PHHO2011CN12758

PATIENT
  Age: 35 Year
  Sex: Female
  Weight: 65.5 kg

DRUGS (4)
  1. OTHER THERAPEUTIC PRODUCTS (LIDANPAZSHI TABLETS) [Concomitant]
     Indication: CHOLELITHIASIS
  2. SOM230 [Suspect]
     Active Substance: PASIREOTIDE
     Indication: ACROMEGALY
     Dosage: 600 UG, BID (CORE PHASE)
     Route: 058
     Dates: start: 20081220
  3. SOM230 [Suspect]
     Active Substance: PASIREOTIDE
     Dosage: EXTENSION PHASE
     Route: 058
     Dates: start: 20091215
  4. OTHER THERAPEUTIC PRODUCTS (LIDANPAZSHI TABLETS) [Concomitant]
     Indication: CHOLELITHIASIS
     Dosage: 5 DF TABLETS, TID
     Dates: start: 20090717, end: 20110719

REACTIONS (1)
  - Cholecystitis acute [Recovered/Resolved]

NARRATIVE: CASE EVENT DATE: 20110719
